FAERS Safety Report 9568832 (Version 1)
Quarter: 2013Q3

REPORT INFORMATION
  Report Type: Spontaneous
  Country: US (occurrence: US)
  Receive Date: 20130930
  Receipt Date: 20130930
  Transmission Date: 20140515
  Serious: Yes (Other)
  Sender: FDA-Public Use
  Company Number: US-AMGEN-USASP2013060754

PATIENT
  Age: 59 Year
  Sex: Female
  Weight: 86.17 kg

DRUGS (6)
  1. ENBREL [Suspect]
     Indication: PRODUCT USED FOR UNKNOWN INDICATION
     Dosage: 25 MG, UNK
     Route: 058
  2. LIPITOR [Concomitant]
     Dosage: 10 MG, UNK
  3. SYNTHROID [Concomitant]
     Dosage: 100 MUG, UNK
  4. NEXIUM                             /01479302/ [Concomitant]
     Dosage: 20 MG, UNK
  5. TYLENOL                            /00020001/ [Concomitant]
     Dosage: 325 MG, UNK
  6. BABY ASPIRIN [Concomitant]
     Dosage: 81 MG, CHW

REACTIONS (4)
  - Gastroenteritis norovirus [Unknown]
  - Influenza [Unknown]
  - Psoriasis [Unknown]
  - Injection site pain [Unknown]
